FAERS Safety Report 7289686-4 (Version None)
Quarter: 2011Q1

REPORT INFORMATION
  Report Type: 
  Country: None (occurrence: None)
  Receive Date: 20110126
  Receipt Date: 20110113
  Transmission Date: 20110831
  Serious: Yes (Death)
  Sender: FDA-Public Use
  Company Number: DSA_44673_2011

PATIENT
  Age: 56 Year
  Sex: Male

DRUGS (1)
  1. NIFEDIPINE [Suspect]
     Indication: PRODUCT USED FOR UNKNOWN INDICATION
     Dosage: (2.7 G 1X, NOT THE PRESCRIBED AMOUNT, ORAL)
     Route: 048

REACTIONS (6)
  - BLOOD PRESSURE SYSTOLIC DECREASED [None]
  - HEART RATE INCREASED [None]
  - TOXICITY TO VARIOUS AGENTS [None]
  - POISONING [None]
  - COMPLETED SUICIDE [None]
  - BLOOD GLUCOSE DECREASED [None]
